FAERS Safety Report 7901030-5 (Version None)
Quarter: 2011Q4

REPORT INFORMATION
  Report Type: 
  Country: None (occurrence: None)
  Receive Date: 20111108
  Receipt Date: 20111102
  Transmission Date: 20120403
  Serious: Yes (Other)
  Sender: FDA-Public Use
  Company Number: BR-PFIZER INC-2011269634

PATIENT
  Age: 56 Year
  Sex: Female
  Weight: 100 kg

DRUGS (3)
  1. PANTOPRAZOLE [Suspect]
     Indication: HIATUS HERNIA
     Dosage: 40 MG, UNK
     Route: 048
     Dates: start: 20111014
  2. ACTONEL [Concomitant]
     Indication: OSTEOPOROSIS
     Dosage: 1 DF, UNK
     Route: 048
     Dates: start: 20090101
  3. LOSARTAN [Concomitant]
     Dosage: 50 MG, UNK
     Route: 048
     Dates: start: 20060101

REACTIONS (4)
  - HEADACHE [None]
  - HAEMATEMESIS [None]
  - TOOTHACHE [None]
  - EYE PAIN [None]
